FAERS Safety Report 10654252 (Version 1)
Quarter: 2014Q4

REPORT INFORMATION
  Report Type: Spontaneous
  Country: US (occurrence: None)
  Receive Date: 20141215
  Receipt Date: 20141215
  Transmission Date: 20150529
  Serious: Yes (Disabling)
  Sender: FDA-Public Use
  Company Number: None

PATIENT
  Age: 44 Year
  Sex: Female
  Weight: 56.7 kg

DRUGS (2)
  1. LEVOFLOXACIN. [Suspect]
     Active Substance: LEVOFLOXACIN
     Indication: BRONCHITIS
     Dosage: 1
     Route: 048
     Dates: start: 20141126, end: 20141206
  2. LEVOFLOXACIN. [Suspect]
     Active Substance: LEVOFLOXACIN
     Indication: BACTERIAL INFECTION
     Dosage: 1
     Route: 048
     Dates: start: 20141126, end: 20141206

REACTIONS (16)
  - Neck pain [None]
  - Back pain [None]
  - Myalgia [None]
  - Headache [None]
  - Arthralgia [None]
  - Pain in extremity [None]
  - Fatigue [None]
  - Migraine [None]
  - Drug ineffective [None]
  - Abdominal pain [None]
  - Musculoskeletal pain [None]
  - Feeling abnormal [None]
  - Diarrhoea [None]
  - Musculoskeletal stiffness [None]
  - Confusional state [None]
  - Product quality issue [None]

NARRATIVE: CASE EVENT DATE: 20141125
